FAERS Safety Report 7792798-X (Version None)
Quarter: 2011Q4

REPORT INFORMATION
  Report Type: 
  Country: None (occurrence: None)
  Receive Date: 20111003
  Receipt Date: 20110928
  Transmission Date: 20120403
  Serious: Yes (Hospitalization)
  Sender: FDA-Public Use
  Company Number: US-GLAXOSMITHKLINE-A0853788A

PATIENT
  Age: 49 Year
  Sex: Female
  Weight: 113.6 kg

DRUGS (9)
  1. ATENOLOL [Concomitant]
  2. TRICOR [Concomitant]
  3. NORVASC [Concomitant]
  4. AVANDIA [Suspect]
     Indication: TYPE 2 DIABETES MELLITUS
     Dosage: 4MG TWICE PER DAY
     Route: 048
     Dates: start: 20010524, end: 20031009
  5. DIOVAN [Concomitant]
  6. INSULIN [Concomitant]
  7. ZIAC [Concomitant]
  8. LIPITOR [Concomitant]
  9. PROZAC [Concomitant]

REACTIONS (7)
  - CARDIAC FAILURE CONGESTIVE [None]
  - PAIN [None]
  - HYPOAESTHESIA [None]
  - CEREBROVASCULAR ACCIDENT [None]
  - MUSCLE SPASMS [None]
  - CORONARY ANGIOPLASTY [None]
  - BLOOD GLUCOSE INCREASED [None]
